FAERS Safety Report 14177428 (Version 2)
Quarter: 2017Q4

REPORT INFORMATION
  Report Type: Report from Study
  Country: US (occurrence: US)
  Receive Date: 20171110
  Receipt Date: 20171128
  Transmission Date: 20180321
  Serious: Yes (Hospitalization, Other)
  Sender: FDA-Public Use
  Company Number: US-BRISTOL-MYERS SQUIBB COMPANY-BMS-2017-101003

PATIENT
  Age: 37 Year
  Sex: Female
  Weight: 64.41 kg

DRUGS (2)
  1. IPILIMUMAB [Suspect]
     Active Substance: IPILIMUMAB
     Indication: INFLAMMATORY CARCINOMA OF THE BREAST
     Dosage: 1 MG/KG, Q6WK
     Route: 042
     Dates: start: 20171018
  2. NIVOLUMAB [Suspect]
     Active Substance: NIVOLUMAB
     Indication: INFLAMMATORY CARCINOMA OF THE BREAST
     Dosage: 240 MG, Q2WK
     Route: 042
     Dates: start: 20171018

REACTIONS (2)
  - Pleural effusion [Recovered/Resolved]
  - Acute respiratory failure [Recovered/Resolved]

NARRATIVE: CASE EVENT DATE: 20171104
